FAERS Safety Report 4930541-X (Version None)
Quarter: 2006Q1

REPORT INFORMATION
  Report Type: 
  Country: None (occurrence: None)
  Receive Date: 20060302
  Receipt Date: 20050303
  Transmission Date: 20060701
  Serious: Yes (Hospitalization)
  Sender: FDA-Public Use
  Company Number: US-MERCK-0503USA00804

PATIENT
  Age: 57 Year
  Sex: Male

DRUGS (10)
  1. VIOXX [Suspect]
     Route: 048
  2. SKELAXIN [Concomitant]
     Route: 065
  3. NITROGLYCERIN [Concomitant]
     Route: 065
  4. LIPITOR [Concomitant]
     Route: 065
  5. PREVACID [Concomitant]
     Route: 065
  6. LANOXIN [Concomitant]
     Route: 065
  7. ASPIRIN [Concomitant]
     Route: 065
  8. ETODOLAC [Concomitant]
     Route: 065
  9. FUROSEMIDE [Concomitant]
     Route: 065
  10. WELLBUTRIN [Concomitant]
     Route: 065

REACTIONS (19)
  - ACUTE MYOCARDIAL INFARCTION [None]
  - AORTIC VALVE INCOMPETENCE [None]
  - DILATATION VENTRICULAR [None]
  - DIZZINESS [None]
  - EJECTION FRACTION DECREASED [None]
  - EXCORIATION [None]
  - HAEMOTHORAX [None]
  - HYPOKINESIA [None]
  - INGUINAL HERNIA [None]
  - LEFT VENTRICULAR FAILURE [None]
  - MITRAL VALVE INCOMPETENCE [None]
  - ONCOCYTOMA [None]
  - OSTEOARTHRITIS [None]
  - PNEUMOTHORAX [None]
  - RIB FRACTURE [None]
  - ROAD TRAFFIC ACCIDENT [None]
  - SCAPULA FRACTURE [None]
  - TENDON RUPTURE [None]
  - TRICUSPID VALVE INCOMPETENCE [None]
